FAERS Safety Report 4366381-2 (Version None)
Quarter: 2004Q2

REPORT INFORMATION
  Report Type: 
  Country: None (occurrence: None)
  Receive Date: 20040526
  Receipt Date: 20040526
  Transmission Date: 20050107
  Serious: Yes (Hospitalization)
  Sender: FDA-Public Use
  Company Number: None

PATIENT
  Age: 80 Year
  Sex: Male

DRUGS (5)
  1. GATIFLOXACIN [Suspect]
     Dosage: 200 MG QD IV
     Route: 042
     Dates: start: 20040330, end: 20040330
  2. DESIPRAMINE HCL [Concomitant]
  3. SERTRALINE [Concomitant]
  4. GLIPIZIDE [Concomitant]
  5. METOPROLOL TARTRATE [Concomitant]

REACTIONS (5)
  - ELECTROCARDIOGRAM QT PROLONGED [None]
  - HYPERTENSION [None]
  - HYPOGLYCAEMIA [None]
  - MENTAL STATUS CHANGES [None]
  - TONIC CLONIC MOVEMENTS [None]
